FAERS Safety Report 21986387 (Version 3)
Quarter: 2023Q2

REPORT INFORMATION
  Report Type: Report from Study
  Country: US (occurrence: US)
  Receive Date: 20230213
  Receipt Date: 20230526
  Transmission Date: 20230722
  Serious: Yes (Hospitalization, Other)
  Sender: FDA-Public Use
  Company Number: US-XERIS PHARMACEUTICALS-2022XER00424

PATIENT
  Sex: Female

DRUGS (2)
  1. RECORLEV [Suspect]
     Active Substance: LEVOKETOCONAZOLE
     Indication: Cushing^s syndrome
     Dosage: ONE TABLET (150 MG), 2X/DAY
     Route: 048
     Dates: start: 20221130
  2. STIOLTO RESPIMAT [Suspect]
     Active Substance: OLODATEROL HYDROCHLORIDE\TIOTROPIUM BROMIDE MONOHYDRATE
     Dosage: UNK
     Dates: start: 2022

REACTIONS (11)
  - Chest pain [Unknown]
  - Nausea [Recovering/Resolving]
  - Respiratory tract infection [Recovering/Resolving]
  - Illness [Unknown]
  - Influenza [Recovering/Resolving]
  - Dyspnoea [Unknown]
  - Nasopharyngitis [Not Recovered/Not Resolved]
  - Memory impairment [Unknown]
  - Product dose omission issue [Unknown]
  - Headache [Unknown]
  - Unevaluable event [Unknown]

NARRATIVE: CASE EVENT DATE: 20220101
